FAERS Safety Report 8290293-5 (Version None)
Quarter: 2012Q2

REPORT INFORMATION
  Report Type: 
  Country: None (occurrence: None)
  Receive Date: 20120412
  Receipt Date: 20120412
  Transmission Date: 20120825
  Serious: Yes (Life-Threatening)
  Sender: FDA-Public Use
  Company Number: None

PATIENT
  Sex: Male

DRUGS (1)
  1. ENREL 50MG AMGEN [Suspect]
     Indication: PSORIASIS
     Dosage: 50 MG EVERY WEEK SQ
     Route: 058
     Dates: start: 20120305, end: 20120410

REACTIONS (3)
  - CHEST PAIN [None]
  - HYPERHIDROSIS [None]
  - SWELLING FACE [None]
